FAERS Safety Report 8262897-7 (Version None)
Quarter: 2012Q2

REPORT INFORMATION
  Report Type: 
  Country: None (occurrence: None)
  Receive Date: 20120405
  Receipt Date: 20101116
  Transmission Date: 20120825
  Serious: Yes (Other)
  Sender: FDA-Public Use
  Company Number: JP-GLAXOSMITHKLINE-B0685195A

PATIENT
  Age: 61 Year
  Sex: Male

DRUGS (1)
  1. FLOLAN [Suspect]
     Indication: PULMONARY ARTERIAL HYPERTENSION
     Dosage: 13NGKM PER DAY
     Route: 042
     Dates: start: 20100901

REACTIONS (4)
  - RASH [None]
  - BLISTER [None]
  - PRURITUS [None]
  - PEMPHIGUS [None]
